FAERS Safety Report 23821345 (Version 1)
Quarter: 2024Q2

REPORT INFORMATION
  Report Type: Spontaneous
  Country: US (occurrence: None)
  Receive Date: 20240504
  Receipt Date: 20240504
  Transmission Date: 20240716
  Serious: No
  Sender: FDA-Public Use
  Company Number: None

PATIENT
  Age: 62 Year
  Sex: Female
  Weight: 60.75 kg

DRUGS (25)
  1. GAMMAGARD [Suspect]
     Active Substance: HUMAN IMMUNOGLOBULIN G
     Indication: Post-acute COVID-19 syndrome
     Dosage: OTHER FREQUENCY : MONTHLY;?
     Route: 058
     Dates: start: 20240215, end: 20240411
  2. ARMOUR THYROID [Concomitant]
  3. NALTREXONE [Concomitant]
     Active Substance: NALTREXONE
  4. ACYCLOVIR [Concomitant]
     Active Substance: ACYCLOVIR
  5. PREDNISONE [Concomitant]
     Active Substance: PREDNISONE
  6. METFORMIN [Concomitant]
     Active Substance: METFORMIN HYDROCHLORIDE
  7. TRAZODONE [Concomitant]
     Active Substance: TRAZODONE HYDROCHLORIDE
  8. GAUNFACINE [Concomitant]
  9. VASCEPA [Concomitant]
     Active Substance: ICOSAPENT ETHYL
  10. VITAMIN A [Concomitant]
     Active Substance: VITAMIN A
  11. VITAMIN B COMPLEX [Concomitant]
     Active Substance: CYANOCOBALAMIN\DEXPANTHENOL\NIACINAMIDE\PYRIDOXINE HYDROCHLORIDE\RIBOFLAVIN 5^-PHOSPHATE SODIUM\THIA
  12. VITAMIN C [Concomitant]
     Active Substance: ASCORBIC ACID
  13. VITAMIN E [Concomitant]
     Active Substance: .ALPHA.-TOCOPHEROL
  14. MAGNESIUM [Concomitant]
     Active Substance: MAGNESIUM
  15. LIYSINE [Concomitant]
  16. TAURINE [Concomitant]
     Active Substance: TAURINE
  17. ACETYL-CARNITINE [Concomitant]
  18. QUECERTIN [Concomitant]
  19. NATTOKINASE [Concomitant]
     Active Substance: NATTOKINASE
  20. BILE SALTS [Concomitant]
  21. COENZYME Q10 [Concomitant]
     Active Substance: DIETARY SUPPLEMENT\UBIDECARENONE
  22. ALPHA LIPOID ACID [Concomitant]
  23. CURCURMIN [Concomitant]
  24. GAMMAGARD [Suspect]
     Active Substance: HUMAN IMMUNOGLOBULIN G
     Indication: Chronic fatigue syndrome
  25. GAMMAGARD [Suspect]
     Active Substance: HUMAN IMMUNOGLOBULIN G
     Indication: Chronic fatigue syndrome

REACTIONS (15)
  - Rash erythematous [None]
  - Feeling abnormal [None]
  - Fatigue [None]
  - Malaise [None]
  - Infusion site rash [None]
  - Joint stiffness [None]
  - Arthralgia [None]
  - Arthralgia [None]
  - Joint stiffness [None]
  - Musculoskeletal stiffness [None]
  - Back pain [None]
  - Influenza like illness [None]
  - Muscle spasms [None]
  - Gait disturbance [None]
  - Feeling hot [None]

NARRATIVE: CASE EVENT DATE: 20240411
